FAERS Safety Report 21499042 (Version 1)
Quarter: 2022Q4

REPORT INFORMATION
  Report Type: Spontaneous
  Country: US (occurrence: None)
  Receive Date: 20221022
  Receipt Date: 20221022
  Transmission Date: 20230113
  Serious: Yes (unspecified)
  Sender: FDA-Public Use
  Company Number: None

PATIENT
  Age: 25 Year
  Sex: Female
  Weight: 131.4 kg

DRUGS (2)
  1. MICONAZOLE 3 [Suspect]
     Active Substance: MICONAZOLE NITRATE
     Indication: Fungal infection
     Dosage: OTHER QUANTITY : 1 SUPPOSITORY(IES);?FREQUENCY : DAILY;?
     Route: 067
     Dates: start: 20221020, end: 20221021
  2. OLLY WOMEN^S DAILY PROBIOTIC [Concomitant]

REACTIONS (6)
  - Chemical burn of genitalia [None]
  - Drug ineffective [None]
  - Vulvovaginal inflammation [None]
  - Vaginal haemorrhage [None]
  - Loss of personal independence in daily activities [None]
  - Dysuria [None]

NARRATIVE: CASE EVENT DATE: 20221021
